FAERS Safety Report 10724731 (Version 1)
Quarter: 2015Q1

REPORT INFORMATION
  Report Type: Spontaneous
  Country: US (occurrence: None)
  Receive Date: 20150116
  Receipt Date: 20150116
  Transmission Date: 20150721
  Serious: No
  Sender: FDA-Public Use
  Company Number: None

PATIENT
  Age: 72 Year
  Sex: Male
  Weight: 84.5 kg

DRUGS (1)
  1. NIACIN. [Suspect]
     Active Substance: NIACIN
     Indication: HYPERLIPIDAEMIA
     Route: 048
     Dates: start: 20140507, end: 20140626

REACTIONS (5)
  - Nausea [None]
  - Diarrhoea [None]
  - Drug intolerance [None]
  - Flushing [None]
  - Vomiting [None]

NARRATIVE: CASE EVENT DATE: 20140626
